FAERS Safety Report 26112278 (Version 1)
Quarter: 2025Q4

REPORT INFORMATION
  Report Type: Spontaneous
  Country: US (occurrence: US)
  Receive Date: 20251202
  Receipt Date: 20251202
  Transmission Date: 20260117
  Serious: Yes (Life-Threatening, Other)
  Sender: BRACCO
  Company Number: US-BRACCO-2025US08194

PATIENT
  Age: 51 Year
  Sex: Female

DRUGS (27)
  1. LUMASON [Suspect]
     Active Substance: SULFUR HEXAFLUORIDE
     Indication: Echocardiogram
     Dosage: 2.5 ML, SINGLE
     Dates: start: 20251120, end: 20251120
  2. LUMASON [Suspect]
     Active Substance: SULFUR HEXAFLUORIDE
  3. LUMASON [Suspect]
     Active Substance: SULFUR HEXAFLUORIDE
  4. SENNOSIDES [Concomitant]
     Active Substance: SENNOSIDES
  5. PITRESSIN [Concomitant]
     Active Substance: VASOPRESSIN
  6. ASPIRIN [Concomitant]
     Active Substance: ASPIRIN
  7. APRESOLINE-ESIDRIX [Concomitant]
     Active Substance: HYDRALAZINE HYDROCHLORIDE\HYDROCHLOROTHIAZIDE
  8. TRANDATE [Concomitant]
     Active Substance: LABETALOL HYDROCHLORIDE
  9. NORVASC [Concomitant]
     Active Substance: AMLODIPINE BESYLATE
  10. LIPITOR [Concomitant]
     Active Substance: ATORVASTATIN CALCIUM
  11. COREG [Concomitant]
     Active Substance: CARVEDILOL
  12. SYNTHROID [Concomitant]
     Active Substance: LEVOTHYROXINE SODIUM
  13. SODIUM CHLORIDE [Concomitant]
     Active Substance: SODIUM CHLORIDE
  14. Dulcolax [Concomitant]
  15. CALCIUM GLUCONATE [Concomitant]
     Active Substance: CALCIUM GLUCONATE
  16. DECADRON [Concomitant]
     Active Substance: DEXAMETHASONE
  17. DILAUDID [Concomitant]
     Active Substance: HYDROMORPHONE HYDROCHLORIDE
  18. LACTATED RINGERS SOLUTION [Concomitant]
     Active Substance: CALCIUM CHLORIDE\POTASSIUM CHLORIDE\SODIUM CHLORIDE\SODIUM LACTATE
  19. MAGNESIUM SULFATE [Concomitant]
     Active Substance: MAGNESIUM SULFATE
  20. LEVOPHED [Concomitant]
     Active Substance: NOREPINEPHRINE BITARTRATE
  21. POTASSIUM CHLORIDE [Concomitant]
     Active Substance: POTASSIUM CHLORIDE
  22. DIPRIVAN [Concomitant]
     Active Substance: PROPOFOL
  23. ROBAXIN [Concomitant]
     Active Substance: METHOCARBAMOL
  24. ROXICODONE [Concomitant]
     Active Substance: OXYCODONE HYDROCHLORIDE
  25. METROGEL [Concomitant]
     Active Substance: METRONIDAZOLE
  26. MOTRIN [Concomitant]
     Active Substance: IBUPROFEN
  27. XARELTO [Concomitant]
     Active Substance: RIVAROXABAN

REACTIONS (11)
  - Respiratory distress [Unknown]
  - Unresponsive to stimuli [Unknown]
  - Tachycardia [Unknown]
  - Blood pressure decreased [Unknown]
  - Heart rate decreased [Unknown]
  - Pain [Unknown]
  - Erythema [Unknown]
  - Eye movement disorder [Unknown]
  - Agitation [Unknown]
  - Incontinence [Unknown]
  - Vomiting [Unknown]

NARRATIVE: CASE EVENT DATE: 20251120
